FAERS Safety Report 8126046-8 (Version None)
Quarter: 2012Q1

REPORT INFORMATION
  Report Type: 
  Country: None (occurrence: None)
  Receive Date: 20120209
  Receipt Date: 20120126
  Transmission Date: 20120608
  Serious: Yes (Other)
  Sender: FDA-Public Use
  Company Number: FR-ELI_LILLY_AND_COMPANY-FR201202000586

PATIENT
  Age: 68 Year
  Sex: Female

DRUGS (2)
  1. RALOXIFENE [Suspect]
     Indication: OSTEOPOROSIS
     Dosage: 60 MG, QD
     Route: 048
     Dates: start: 20060101
  2. OROCAL                             /00751519/ [Concomitant]
     Dosage: UNK

REACTIONS (1)
  - ENDOMETRIAL CANCER [None]
